FAERS Safety Report 19946911 (Version 2)
Quarter: 2021Q4

REPORT INFORMATION
  Report Type: Report from Study
  Country: DE (occurrence: DE)
  Receive Date: 20211012
  Receipt Date: 20211217
  Transmission Date: 20220303
  Serious: No
  Sender: FDA-Public Use
  Company Number: DE-KARYOPHARM-2021KPT001213

PATIENT
  Age: 79 Year
  Sex: Female

DRUGS (10)
  1. SELINEXOR [Suspect]
     Active Substance: SELINEXOR
     Indication: Plasma cell myeloma
     Dosage: 100 MG, SINGLE
     Route: 048
     Dates: start: 20210906, end: 20210906
  2. SELINEXOR [Suspect]
     Active Substance: SELINEXOR
     Dosage: 80 MG, 2X/WEEK
     Route: 048
     Dates: start: 20210915, end: 20211006
  3. SELINEXOR [Suspect]
     Active Substance: SELINEXOR
     Dosage: 80 MG
     Route: 048
     Dates: end: 20211015
  4. BORTEZOMIB [Concomitant]
     Active Substance: BORTEZOMIB
     Indication: Plasma cell myeloma
     Dosage: UNK
     Dates: start: 20210906, end: 20210906
  5. DEXAMETHASONE [Concomitant]
     Active Substance: DEXAMETHASONE
     Indication: Plasma cell myeloma
     Dosage: 20 MG
     Route: 048
     Dates: start: 20210906, end: 20211006
  6. DEXAMETHASONE [Concomitant]
     Active Substance: DEXAMETHASONE
     Dosage: 20 MG
     Route: 048
     Dates: end: 20211015
  7. ONDANSETRON [Concomitant]
     Active Substance: ONDANSETRON
     Indication: Antiemetic supportive care
     Dosage: UNK, TID
  8. ONDANSETRON [Concomitant]
     Active Substance: ONDANSETRON
     Dosage: UNK, 1 HOUR BEFORE SELINEXOR DOSE
  9. APREPITANT [Concomitant]
     Active Substance: APREPITANT
     Indication: Antiemetic supportive care
     Dosage: 125 MG, 1 HOUR BEFORE SELINEXOR DOSE
  10. APREPITANT [Concomitant]
     Active Substance: APREPITANT
     Dosage: 80 MG, DAY 2 AND 3

REACTIONS (4)
  - Polyneuropathy [Unknown]
  - Diarrhoea [Unknown]
  - Nausea [Unknown]
  - Vomiting [Unknown]

NARRATIVE: CASE EVENT DATE: 20210901
